FAERS Safety Report 4633574-6 (Version None)
Quarter: 2005Q2

REPORT INFORMATION
  Report Type: 
  Country: None (occurrence: None)
  Receive Date: 20050411
  Receipt Date: 20050411
  Transmission Date: 20051028
  Serious: Yes (Other)
  Sender: FDA-Public Use
  Company Number: None

PATIENT
  Age: 41 Year
  Sex: Male
  Weight: 65.7716 kg

DRUGS (2)
  1. PAXIL CR [Suspect]
     Indication: ANXIETY
     Dates: start: 20030713, end: 20050222
  2. PAXIL CR [Suspect]
     Indication: DEPRESSION
     Dates: start: 20030713, end: 20050222

REACTIONS (1)
  - DIABETES MELLITUS [None]
